FAERS Safety Report 9988828 (Version 1)
Quarter: 2014Q1

REPORT INFORMATION
  Report Type: Spontaneous
  Country: MX (occurrence: MX)
  Receive Date: 20140310
  Receipt Date: 20140310
  Transmission Date: 20141002
  Serious: Yes (Hospitalization)
  Sender: FDA-Public Use
  Company Number: MX-ELI_LILLY_AND_COMPANY-MX201402008526

PATIENT
  Age: 58 Year
  Sex: Female

DRUGS (1)
  1. CYMBALTA [Suspect]
     Indication: ARTHRITIS
     Dosage: 30 MG, UNKNOWN
     Route: 065

REACTIONS (3)
  - Pain [Unknown]
  - Hypertension [Unknown]
  - Dry mouth [Unknown]
